FAERS Safety Report 13801256 (Version 1)
Quarter: 2017Q3

REPORT INFORMATION
  Report Type: Spontaneous
  Country: BR (occurrence: BR)
  Receive Date: 20170727
  Receipt Date: 20170727
  Transmission Date: 20171127
  Serious: Yes (Hospitalization, Other)
  Sender: FDA-Public Use
  Company Number: BR-PFIZER INC-2017323545

PATIENT
  Sex: Female

DRUGS (7)
  1. STILNOX [Suspect]
     Active Substance: ZOLPIDEM TARTRATE
     Dosage: UNK
  2. SEROQUEL [Suspect]
     Active Substance: QUETIAPINE FUMARATE
     Dosage: UNK
  3. CYMBALTA [Suspect]
     Active Substance: DULOXETINE HYDROCHLORIDE
     Dosage: UNK
  4. LYRICA [Suspect]
     Active Substance: PREGABALIN
     Indication: PAIN
     Dosage: UNK
     Dates: start: 2014
  5. TRAMAL [Suspect]
     Active Substance: TRAMADOL
     Dosage: UNK
  6. RIVOTRIL [Suspect]
     Active Substance: CLONAZEPAM
     Dosage: UNK
  7. MYDETON (TOLPERISONE HYDROCHLORIDE) [Suspect]
     Active Substance: TOLPERISONE HYDROCHLORIDE
     Dosage: UNK

REACTIONS (4)
  - Suicide attempt [Unknown]
  - Intellectual disability [Unknown]
  - Somnolence [Unknown]
  - Memory impairment [Not Recovered/Not Resolved]

NARRATIVE: CASE EVENT DATE: 201707
